FAERS Safety Report 8963942 (Version 2)
Quarter: 2013Q1

REPORT INFORMATION
  Report Type: Spontaneous
  Country: US (occurrence: US)
  Receive Date: 20121213
  Receipt Date: 20130123
  Transmission Date: 20140127
  Serious: Yes (Hospitalization, Other)
  Sender: FDA-Public Use
  Company Number: US-ASTRAZENECA-2012SE91235

PATIENT
  Age: 34 Year
  Sex: Female

DRUGS (13)
  1. SEROQUEL [Suspect]
     Indication: BIPOLAR I DISORDER
     Route: 048
     Dates: start: 200902
  2. SEROQUEL [Suspect]
     Indication: BIPOLAR I DISORDER
     Route: 048
     Dates: start: 200907, end: 20121128
  3. SEROQUEL [Suspect]
     Indication: BIPOLAR I DISORDER
     Dosage: 200 MG TO 300 MG
     Route: 048
     Dates: start: 200910
  4. SEROQUEL [Suspect]
     Indication: BIPOLAR I DISORDER
     Route: 048
     Dates: start: 201211, end: 20121128
  5. SEROQUEL [Suspect]
     Indication: BIPOLAR I DISORDER
     Route: 048
     Dates: end: 20121204
  6. TRAZADONE [Concomitant]
     Dates: start: 200902
  7. ABILIFY [Concomitant]
     Dates: start: 200907, end: 200909
  8. LITHIUM [Concomitant]
     Dates: start: 200910
  9. LITHIUM [Concomitant]
     Dates: start: 201211
  10. LAMICTAL [Concomitant]
     Dates: start: 200910
  11. LAMICTAL [Concomitant]
     Dates: start: 201211
  12. KLONOPIN [Concomitant]
  13. PROZAC [Concomitant]
     Dates: start: 201211

REACTIONS (5)
  - Myoclonus [Unknown]
  - Fall [Unknown]
  - Gait disturbance [Unknown]
  - Conversion disorder [Recovering/Resolving]
  - Dystonia [Recovering/Resolving]
